FAERS Safety Report 23257012 (Version 1)
Quarter: 2023Q4

REPORT INFORMATION
  Report Type: Spontaneous
  Country: US (occurrence: US)
  Receive Date: 20231204
  Receipt Date: 20231204
  Transmission Date: 20240110
  Serious: Yes (Other)
  Sender: FDA-Public Use
  Company Number: US-GLAXOSMITHKLINE-US2023166336

PATIENT

DRUGS (1)
  1. BENLYSTA [Suspect]
     Active Substance: BELIMUMAB
     Indication: Product used for unknown indication
     Dosage: UNK
     Dates: end: 20230701

REACTIONS (5)
  - Renal failure [Unknown]
  - Systemic lupus erythematosus [Unknown]
  - Surgery [Unknown]
  - Pain in extremity [Unknown]
  - Arthralgia [Unknown]
